FAERS Safety Report 5262826-4 (Version None)
Quarter: 2007Q1

REPORT INFORMATION
  Report Type: 
  Country: None (occurrence: None)
  Receive Date: 20070312
  Receipt Date: 20070227
  Transmission Date: 20070707
  Serious: Yes (Hospitalization)
  Sender: FDA-Public Use
  Company Number: US-ROCHE-386416

PATIENT
  Age: 54 Year
  Sex: Female
  Weight: 110.7 kg

DRUGS (19)
  1. PEG-INTERFERON ALFA 2A (RO 25-8310) [Suspect]
     Route: 058
     Dates: start: 20040720, end: 20041108
  2. PEG-INTERFERON ALFA 2A (RO 25-8310) [Suspect]
     Route: 058
     Dates: start: 20041207
  3. PEG-INTERFERON ALFA 2A (RO 25-8310) [Suspect]
     Route: 058
     Dates: start: 20050111, end: 20050424
  4. RIBAVIRIN [Suspect]
     Dosage: ADMINISTERED ONCE IN THE MORNING AND ONCE IN THE EVENING.
     Route: 048
     Dates: start: 20040720, end: 20041108
  5. RIBAVIRIN [Suspect]
     Dosage: FREQUENCY REPORTED AS: IN SPLIT DOSE.
     Route: 048
     Dates: end: 20041125
  6. INSULIN [Concomitant]
     Dosage: INSULIN WITH A DOSE OF 15 UNITS, WAS STOPPED ON 24 APRIL 2004. RESTARTED ON AN UNKNOWN DATE .
     Dates: start: 20010515
  7. TEVETEN HCT [Concomitant]
     Dosage: STOPPED ON 24 APR 2005 AND RESTARTED AT AN UNKNOWN DATE.
     Dates: start: 20030615
  8. DARVOCET [Concomitant]
     Dates: start: 20020615
  9. ZOLOFT [Concomitant]
     Dosage: AS OF 03 DEC 2004 INCREASED TO 50 MG PER DAY.
     Dates: start: 20041019
  10. TOPROL-XL [Concomitant]
     Dosage: DOSE INCREASED TO 200 MG ON 03 DEC 2004.
     Dates: start: 20011212
  11. PROPOXYPHENE NAPSYLATE [Concomitant]
     Dosage: TOTAL DAILY DOSE REPORTED AS 100/65MG.
     Dates: start: 20000615, end: 20050424
  12. PROTONIX [Concomitant]
     Dosage: REPORTED AS PROTONIX T.
     Dates: start: 20040810, end: 20050424
  13. LEXAPRO [Concomitant]
     Dates: start: 20040810, end: 20050424
  14. MAGNESIUM OXIDE [Concomitant]
     Dates: start: 20041203
  15. NEUTRA-PHOS [Concomitant]
     Dosage: TWO PACKS DAILY.
     Dates: start: 20041203
  16. PREVACID [Concomitant]
     Dates: start: 20041203
  17. TOPROL-XL [Concomitant]
     Dates: start: 20020615
  18. FOLIC ACID [Concomitant]
     Dosage: STOPPED ON 24 APR 2005 AND RESTARTED AT AN UNKNOWN DATE.
     Dates: start: 20041203
  19. TOPROL-XL [Concomitant]
     Dates: start: 20041203

REACTIONS (5)
  - GRAND MAL CONVULSION [None]
  - HYPOKALAEMIA [None]
  - NAUSEA [None]
  - THROMBOCYTOPENIA [None]
  - VOMITING [None]
